FAERS Safety Report 11594846 (Version 3)
Quarter: 2015Q4

REPORT INFORMATION
  Report Type: Spontaneous
  Country: RU (occurrence: RU)
  Receive Date: 20151005
  Receipt Date: 20151125
  Transmission Date: 20160304
  Serious: Yes (Life-Threatening, Other)
  Sender: FDA-Public Use
  Company Number: RU-ABBVIE-15P-251-1475811-00

PATIENT
  Age: 4 Year
  Sex: Female

DRUGS (13)
  1. DEPAKENE [Suspect]
     Active Substance: VALPROIC ACID
     Route: 048
     Dates: start: 20150725, end: 20150731
  2. DEPAKENE [Suspect]
     Active Substance: VALPROIC ACID
     Route: 048
     Dates: start: 201502
  3. DEPAKENE [Suspect]
     Active Substance: VALPROIC ACID
     Route: 048
     Dates: start: 20150525, end: 20150627
  4. DEPAKENE [Suspect]
     Active Substance: VALPROIC ACID
     Route: 048
     Dates: start: 20150628, end: 20150715
  5. DEPAKENE [Suspect]
     Active Substance: VALPROIC ACID
     Route: 048
     Dates: start: 20150717, end: 20150724
  6. DEPAKENE [Suspect]
     Active Substance: VALPROIC ACID
     Route: 048
     Dates: start: 201508, end: 20150901
  7. DEPAKENE [Suspect]
     Active Substance: VALPROIC ACID
     Route: 048
     Dates: start: 20150902, end: 20150922
  8. DEPAKENE [Suspect]
     Active Substance: VALPROIC ACID
     Indication: EPILEPSY
     Route: 048
  9. DEPAKENE [Suspect]
     Active Substance: VALPROIC ACID
     Route: 048
  10. DEPAKENE [Suspect]
     Active Substance: VALPROIC ACID
     Route: 048
     Dates: start: 201503, end: 20150505
  11. DEPAKENE [Suspect]
     Active Substance: VALPROIC ACID
     Route: 048
     Dates: start: 20150505, end: 20150525
  12. CARSIL [Concomitant]
     Indication: PRODUCT USED FOR UNKNOWN INDICATION
  13. TRILEPTAL [Concomitant]
     Active Substance: OXCARBAZEPINE
     Indication: PRODUCT USED FOR UNKNOWN INDICATION

REACTIONS (5)
  - Salivary hypersecretion [Not Recovered/Not Resolved]
  - Overdose [Unknown]
  - Suspected counterfeit product [Unknown]
  - Seizure [Recovered/Resolved]
  - Slow speech [Not Recovered/Not Resolved]
